FAERS Safety Report 4342975-5 (Version None)
Quarter: 2004Q1

REPORT INFORMATION
  Report Type: 
  Country: None (occurrence: None)
  Receive Date: 20040325
  Receipt Date: 20040211
  Transmission Date: 20041129
  Serious: No
  Sender: FDA-Public Use
  Company Number: USA040258182

PATIENT
  Age: 84 Year
  Sex: Female

DRUGS (1)
  1. FORTEO [Suspect]

REACTIONS (8)
  - BURNING SENSATION [None]
  - CRYING [None]
  - HUNGER [None]
  - INSOMNIA [None]
  - MOOD ALTERED [None]
  - OVERDOSE [None]
  - RESTLESSNESS [None]
  - SCREAMING [None]
